FAERS Safety Report 24717591 (Version 5)
Quarter: 2025Q3

REPORT INFORMATION
  Report Type: Spontaneous
  Country: US (occurrence: US)
  Receive Date: 20241210
  Receipt Date: 20250730
  Transmission Date: 20251020
  Serious: No
  Sender: PFIZER
  Company Number: US-PFIZER INC-202400303391

PATIENT
  Age: 54 Year
  Sex: Female

DRUGS (17)
  1. IBRANCE [Suspect]
     Active Substance: PALBOCICLIB
     Indication: Hormone receptor positive breast cancer
     Route: 048
     Dates: start: 20240809
  2. IBRANCE [Suspect]
     Active Substance: PALBOCICLIB
     Route: 048
     Dates: start: 20240809
  3. IBRANCE [Suspect]
     Active Substance: PALBOCICLIB
     Route: 048
     Dates: start: 2024
  4. IBRANCE [Suspect]
     Active Substance: PALBOCICLIB
     Route: 048
  5. NICOTINE POLACRILEX [Concomitant]
     Active Substance: NICOTINE
  6. FLUTICASONE FUROATE\SALMETEROL XINAFOATE [Concomitant]
     Active Substance: FLUTICASONE FUROATE\SALMETEROL XINAFOATE
  7. ALBUTEROL [Concomitant]
     Active Substance: ALBUTEROL
  8. NICOTINE TRANSDERMAL SYSTEM [Concomitant]
     Active Substance: NICOTINE
     Dosage: 7 MG, 1X/DAY (24HR)
  9. ONDANSETRON [Concomitant]
     Active Substance: ONDANSETRON
  10. BUDESONIDE\FORMOTEROL [Concomitant]
     Active Substance: BUDESONIDE\FORMOTEROL
  11. NAPROXEN [Concomitant]
     Active Substance: NAPROXEN
  12. LETROZOLE [Concomitant]
     Active Substance: LETROZOLE
  13. GOSERELIN [Concomitant]
     Active Substance: GOSERELIN
  14. PANTOPRAZOLE [Concomitant]
     Active Substance: PANTOPRAZOLE
  15. VITAMIN D NOS [Concomitant]
     Active Substance: CHOLECALCIFEROL\ERGOCALCIFEROL
  16. CYANOCOBALAMIN [Concomitant]
     Active Substance: CYANOCOBALAMIN
  17. CALCIUM [Concomitant]
     Active Substance: CALCIUM

REACTIONS (7)
  - Fatigue [Not Recovered/Not Resolved]
  - Discomfort [Unknown]
  - Loss of personal independence in daily activities [Not Recovered/Not Resolved]
  - Insomnia [Not Recovered/Not Resolved]
  - Pain [Unknown]
  - Rash pruritic [Not Recovered/Not Resolved]
  - Decreased appetite [Not Recovered/Not Resolved]
